FAERS Safety Report 6712356-5 (Version None)
Quarter: 2010Q2

REPORT INFORMATION
  Report Type: 
  Country: None (occurrence: None)
  Receive Date: 20100505
  Receipt Date: 20100430
  Transmission Date: 20101027
  Serious: Yes (Life-Threatening)
  Sender: FDA-Public Use
  Company Number: UG-ABBOTT-10P-165-0642330-00

PATIENT
  Age: 5 Year
  Sex: Male

DRUGS (9)
  1. ALUVIA TABLETS [Suspect]
     Indication: MALARIA PROPHYLAXIS
     Route: 048
  2. AZT [Concomitant]
     Indication: HIV INFECTION
     Dates: start: 20091123, end: 20091224
  3. AZT [Concomitant]
     Dates: start: 20100317
  4. COTRIM [Concomitant]
     Indication: HIV INFECTION
     Dates: end: 20091224
  5. COTRIM [Concomitant]
     Dates: start: 20100120, end: 20100219
  6. COTRIM [Concomitant]
     Dates: start: 20100302
  7. LAMIVUDINE (EPIVIR HBV) [Concomitant]
     Indication: HIV INFECTION
     Dates: start: 20091123
  8. NEVIRAPINE [Concomitant]
     Indication: HIV INFECTION
     Dates: start: 20091123
  9. D4T [Concomitant]
     Indication: HIV INFECTION
     Dates: start: 20091224

REACTIONS (1)
  - NEUTROPENIA [None]
